FAERS Safety Report 20631305 (Version 3)
Quarter: 2022Q2

REPORT INFORMATION
  Report Type: Other
  Country: CA (occurrence: CA)
  Receive Date: 20220324
  Receipt Date: 20220527
  Transmission Date: 20220721
  Serious: Yes (Death, Other)
  Sender: FDA-Public Use
  Company Number: CA-TOLMAR, INC.-21CA032218

PATIENT
  Age: 74 Year
  Sex: Male

DRUGS (2)
  1. ELIGARD [Suspect]
     Active Substance: LEUPROLIDE ACETATE
     Indication: Prostate cancer
     Dosage: 22.5 MILLIGRAM, Q 3 MONTH
     Route: 058
     Dates: start: 20211228
  2. ELIGARD [Suspect]
     Active Substance: LEUPROLIDE ACETATE
     Dosage: 22.5 MILLIGRAM, Q 3 MONTH
     Route: 058
     Dates: start: 20180315

REACTIONS (3)
  - Respiratory failure [Fatal]
  - COVID-19 [Fatal]
  - Pneumonia [Unknown]

NARRATIVE: CASE EVENT DATE: 20220107
